FAERS Safety Report 6914290-4 (Version None)
Quarter: 2010Q3

REPORT INFORMATION
  Report Type: 
  Country: None (occurrence: None)
  Receive Date: 20100809
  Receipt Date: 20100803
  Transmission Date: 20110219
  Serious: Yes (Congenital Anomaly, Other)
  Sender: FDA-Public Use
  Company Number: B0667433A

PATIENT
  Sex: Male
  Weight: 2.4 kg

DRUGS (5)
  1. PAROXETINE [Suspect]
     Indication: BIPOLAR I DISORDER
  2. VALPROATE SODIUM [Suspect]
     Indication: BIPOLAR I DISORDER
  3. QUETIAPINE FUMARATE [Suspect]
     Indication: BIPOLAR I DISORDER
  4. NITRAZEPAM [Suspect]
     Indication: BIPOLAR I DISORDER
  5. TRIAZOLAM [Suspect]
     Indication: BIPOLAR I DISORDER

REACTIONS (12)
  - ABDOMINAL WALL ANOMALY [None]
  - BREECH PRESENTATION [None]
  - CAESAREAN SECTION [None]
  - DIAPHRAGMATIC APLASIA [None]
  - DIAPHRAGMATIC HERNIA [None]
  - DRUG EXPOSURE DURING PREGNANCY [None]
  - EXOMPHALOS [None]
  - FOETAL MALFORMATION [None]
  - INTESTINAL PROLAPSE [None]
  - LIVER PROLAPSE [None]
  - PERICARDIAL DISEASE [None]
  - PERICARDIAL EFFUSION [None]
